FAERS Safety Report 11179045 (Version 1)
Quarter: 2015Q2

REPORT INFORMATION
  Report Type: Spontaneous
  Country: US (occurrence: None)
  Receive Date: 20150526
  Receipt Date: 20150526
  Transmission Date: 20150821
  Serious: No
  Sender: FDA-Public Use
  Company Number: US-145656

PATIENT
  Age: 72 Year
  Sex: Female
  Weight: 102.1 kg

DRUGS (6)
  1. FAMOTIDINE. [Concomitant]
     Active Substance: FAMOTIDINE
  2. PROPOFOL. [Concomitant]
     Active Substance: PROPOFOL
  3. CHLORHEXIDINE GLUCONATE. [Concomitant]
     Active Substance: CHLORHEXIDINE GLUCONATE
  4. LOVENOX [Concomitant]
     Active Substance: ENOXAPARIN SODIUM
  5. BOTULISM ANTITOXIN (NONE) [Suspect]
     Active Substance: BOTULISM ANTITOXIN
     Indication: BOTULISM
     Dosage: INTRAVENOUS (NOT OTHERWISE SPECIFIED)
     Route: 042
     Dates: start: 20150422, end: 20150422
  6. PHOS-NAK [Concomitant]

REACTIONS (2)
  - Pneumonia [None]
  - Tachycardia [None]

NARRATIVE: CASE EVENT DATE: 20150427
